FAERS Safety Report 9157879 (Version 1)
Quarter: 2013Q1

REPORT INFORMATION
  Report Type: Spontaneous
  Country: US (occurrence: US)
  Receive Date: 20130312
  Receipt Date: 20130312
  Transmission Date: 20140127
  Serious: Yes (Death, Hospitalization)
  Sender: FDA-Public Use
  Company Number: US-ELI_LILLY_AND_COMPANY-US201210001052

PATIENT
  Age: 64 Year
  Sex: Female

DRUGS (2)
  1. FORTEO [Suspect]
     Dosage: 20 UG, QD
     Dates: start: 201209
  2. FORTEO [Suspect]
     Dosage: UNK, QD
     Dates: start: 201209

REACTIONS (4)
  - Pituitary-dependent Cushing^s syndrome [Fatal]
  - Pulmonary oedema [Unknown]
  - Gastrointestinal disorder [Unknown]
  - Nausea [Recovering/Resolving]
